FAERS Safety Report 15610805 (Version 1)
Quarter: 2018Q4

REPORT INFORMATION
  Report Type: Spontaneous
  Country: US (occurrence: US)
  Receive Date: 20181113
  Receipt Date: 20181113
  Transmission Date: 20190205
  Serious: No
  Sender: FDA-Public Use
  Company Number: US-ROCHE-2112304

PATIENT
  Age: 48 Year

DRUGS (1)
  1. LUCENTIS [Suspect]
     Active Substance: RANIBIZUMAB
     Indication: PRODUCT USED FOR UNKNOWN INDICATION
     Route: 065

REACTIONS (5)
  - Injection site pain [Unknown]
  - Ocular hyperaemia [Unknown]
  - Visual impairment [Unknown]
  - Ocular neoplasm [Unknown]
  - Vitreous floaters [Unknown]
